FAERS Safety Report 23992709 (Version 1)
Quarter: 2024Q2

REPORT INFORMATION
  Report Type: Spontaneous
  Country: US (occurrence: US)
  Receive Date: 20240620
  Receipt Date: 20240620
  Transmission Date: 20240716
  Serious: No
  Sender: FDA-Public Use
  Company Number: US-IBSA PHARMA INC.-2024IBS000088

PATIENT

DRUGS (1)
  1. LIDOCAINE [Suspect]
     Active Substance: LIDOCAINE
     Indication: Back pain
     Dosage: UNK, QD
     Route: 061

REACTIONS (3)
  - Therapeutic product effect incomplete [Unknown]
  - Product adhesion issue [Unknown]
  - Product quality issue [Unknown]
